FAERS Safety Report 24263880 (Version 2)
Quarter: 2024Q3

REPORT INFORMATION
  Report Type: Report from Study
  Country: US (occurrence: US)
  Receive Date: 20240829
  Receipt Date: 20240905
  Transmission Date: 20241017
  Serious: Yes (Hospitalization)
  Sender: ABBVIE
  Company Number: US-ABBVIE-5896257

PATIENT
  Age: 54 Year
  Sex: Female

DRUGS (2)
  1. CREON [Suspect]
     Active Substance: PANCRELIPASE AMYLASE\PANCRELIPASE LIPASE\PANCRELIPASE PROTEASE
     Indication: Pancreatitis
     Dosage: FORM STRENGTH: 36000 UNIT?FREQUENCY TEXT: 1 CAP EACH MEAL
     Route: 048
     Dates: start: 20240828
  2. CREON [Suspect]
     Active Substance: PANCRELIPASE AMYLASE\PANCRELIPASE LIPASE\PANCRELIPASE PROTEASE
     Indication: Pancreatitis
     Dosage: FORM STRENGTH: 36000 UNIT?FREQUENCY TEXT: 1 CAP EACH MEAL
     Route: 048
     Dates: start: 20240731, end: 20240819

REACTIONS (4)
  - Angina pectoris [Not Recovered/Not Resolved]
  - Abdominal pain upper [Not Recovered/Not Resolved]
  - Vomiting [Unknown]
  - Adverse food reaction [Unknown]

NARRATIVE: CASE EVENT DATE: 20240801
